FAERS Safety Report 6989849-9 (Version None)
Quarter: 2010Q3

REPORT INFORMATION
  Report Type: 
  Country: None (occurrence: None)
  Receive Date: 20100916
  Receipt Date: 20100319
  Transmission Date: 20110219
  Serious: Yes (Other)
  Sender: FDA-Public Use
  Company Number: AU-PFIZER INC-2010019240

PATIENT
  Sex: Female
  Weight: 83 kg

DRUGS (6)
  1. LYRICA [Suspect]
     Indication: NEURALGIA
     Dosage: 75 MG, 1X/DAY
     Route: 048
     Dates: start: 20090918, end: 20091101
  2. KARVEZIDE [Concomitant]
     Indication: HYPERTENSION
     Dosage: 12.5/300; ONCE DAILY
     Route: 048
  3. MOTILIUM [Concomitant]
     Indication: DIARRHOEA
     Dosage: 10 MG, 3X/DAY ONGOING/INTERMITTENT
     Route: 048
  4. NEXIUM [Concomitant]
     Indication: GASTROOESOPHAGEAL REFLUX DISEASE
     Dosage: 20 MG, 1X/DAY
     Route: 048
  5. SANDRENA [Concomitant]
     Indication: HORMONE REPLACEMENT THERAPY
     Dosage: UNK
     Route: 061
  6. SYMBICORT [Concomitant]
     Indication: ASTHMA
     Dosage: 2 PUFFS 2X/DAY

REACTIONS (5)
  - ABDOMINAL PAIN LOWER [None]
  - BLOOD PRESSURE INCREASED [None]
  - GENERALISED OEDEMA [None]
  - NAUSEA [None]
  - REGURGITATION [None]
